FAERS Safety Report 5290399-9 (Version None)
Quarter: 2007Q2

REPORT INFORMATION
  Report Type: 
  Country: None (occurrence: None)
  Receive Date: 20070404
  Receipt Date: 20070404
  Transmission Date: 20071010
  Serious: No
  Sender: FDA-Public Use
  Company Number: None

PATIENT
  Age: 19 Month
  Sex: Male

DRUGS (2)
  1. CEFTIN [Suspect]
     Indication: EAR INFECTION
     Dosage: SUSPENSION  BOTTLE 100 ML
  2. CEFTIN [Suspect]
     Dosage: SUSPENSION  BOTTLE

REACTIONS (3)
  - DRUG DISPENSING ERROR [None]
  - INTERCEPTED MEDICATION ERROR [None]
  - MEDICATION ERROR [None]
